FAERS Safety Report 16789601 (Version 5)
Quarter: 2020Q3

REPORT INFORMATION
  Report Type: Report from Study
  Country: JP (occurrence: JP)
  Receive Date: 20190910
  Receipt Date: 20200916
  Transmission Date: 20201102
  Serious: Yes (Other)
  Sender: FDA-Public Use
  Company Number: JP-ASTELLAS-2019JP019871

PATIENT
  Age: 43 Year
  Sex: Male

DRUGS (3)
  1. ASP2215 [Suspect]
     Active Substance: GILTERITINIB
     Indication: ACUTE MYELOID LEUKAEMIA RECURRENT
     Route: 048
     Dates: start: 20190613, end: 20190703
  2. ASP2215 [Suspect]
     Active Substance: GILTERITINIB
     Dosage: 80 MG, UNKNOWN FREQ.
     Route: 048
     Dates: start: 20191108, end: 20191111
  3. FOSCARNET SODIUM HYDRATE [Concomitant]
     Active Substance: FOSCARNET SODIUM
     Indication: ENCEPHALITIS VIRAL
     Dosage: UNK UNK, UNKNOWN FREQ.
     Dates: start: 201908

REACTIONS (5)
  - Encephalitis viral [Recovered/Resolved]
  - Renal impairment [Unknown]
  - Infection [Unknown]
  - Hepatic vein occlusion [Unknown]
  - Hepatic enzyme increased [Unknown]

NARRATIVE: CASE EVENT DATE: 20190803
